FAERS Safety Report 5334279-9 (Version None)
Quarter: 2007Q2

REPORT INFORMATION
  Report Type: 
  Country: None (occurrence: None)
  Receive Date: 20070525
  Receipt Date: 20070521
  Transmission Date: 20071010
  Serious: Yes (Death, Hospitalization)
  Sender: FDA-Public Use
  Company Number: PHEH2007US05417

PATIENT
  Age: 91 Year
  Sex: Male

DRUGS (1)
  1. ZELNORM [Suspect]
     Indication: CONSTIPATION
     Route: 065
     Dates: start: 20060801

REACTIONS (6)
  - BILE DUCT OBSTRUCTION [None]
  - BILIARY TRACT OPERATION [None]
  - CHOLECYSTECTOMY [None]
  - CHOLELITHIASIS [None]
  - DEEP VEIN THROMBOSIS [None]
  - THROMBOSIS [None]
